FAERS Safety Report 5817741-1 (Version None)
Quarter: 2008Q3

REPORT INFORMATION
  Report Type: 
  Country: None (occurrence: None)
  Receive Date: 20080722
  Receipt Date: 20080716
  Transmission Date: 20090109
  Serious: Yes (Other)
  Sender: FDA-Public Use
  Company Number: PHRM2008FR01125

PATIENT
  Sex: Male
  Weight: 74 kg

DRUGS (1)
  1. EXFORGE [Suspect]
     Indication: HYPERTENSION
     Dosage: 160/5 MG/DAY, 1 TABLET
     Route: 048
     Dates: start: 20080109, end: 20080219

REACTIONS (6)
  - BRAIN OEDEMA [None]
  - DIZZINESS [None]
  - GENERALISED OEDEMA [None]
  - GYNAECOMASTIA [None]
  - HEADACHE [None]
  - OEDEMA PERIPHERAL [None]
